FAERS Safety Report 4909074-2 (Version None)
Quarter: 2006Q1

REPORT INFORMATION
  Report Type: 
  Country: None (occurrence: None)
  Receive Date: 20060209
  Receipt Date: 20060209
  Transmission Date: 20060701
  Serious: Yes (Other)
  Sender: FDA-Public Use
  Company Number: None

PATIENT
  Sex: Female

DRUGS (1)
  1. ENBREL [Suspect]
     Indication: PSORIASIS
     Dosage: 50 MG 2 TIME A WEEK SQ
     Route: 058
     Dates: start: 20051215, end: 20051223

REACTIONS (3)
  - PHARYNGOLARYNGEAL PAIN [None]
  - RASH [None]
  - STREPTOCOCCAL INFECTION [None]
